FAERS Safety Report 4469956-5 (Version None)
Quarter: 2004Q3

REPORT INFORMATION
  Report Type: 
  Country: None (occurrence: None)
  Receive Date: 20040920
  Receipt Date: 20040726
  Transmission Date: 20050211
  Serious: No
  Sender: FDA-Public Use
  Company Number: A-US2004-06969

PATIENT
  Age: 50 Year
  Sex: Female

DRUGS (11)
  1. TRACLEER [Suspect]
     Indication: PULMONARY HYPERTENSION
     Dosage: 62,5 MG, BID, ORAL
     Route: 048
     Dates: start: 20040613
  2. FLOLAN [Concomitant]
  3. PEPCID [Concomitant]
  4. SYNTHROID [Concomitant]
  5. FLOVENT [Concomitant]
  6. LEXAPRO [Concomitant]
  7. ZOFRAN [Concomitant]
  8. MAGNESIUM OXIDE (MAGENSIUM OXIDE) [Concomitant]
  9. LASIX (FUOSEMIDE) [Concomitant]
  10. COUMADIN [Concomitant]
  11. PERCOCET (OXYCODONE HYDROCHLORIDE, OXYCODONE TAREPHTHALATE, PARACETAMO [Concomitant]

REACTIONS (6)
  - ABDOMINAL PAIN [None]
  - ALANINE AMINOTRANSFERASE INCREASED [None]
  - ASPARTATE AMINOTRANSFERASE INCREASED [None]
  - DIARRHOEA [None]
  - LIVER FUNCTION TEST ABNORMAL [None]
  - NAUSEA [None]
